FAERS Safety Report 4791338-7 (Version None)
Quarter: 2005Q4

REPORT INFORMATION
  Report Type: 
  Country: None (occurrence: None)
  Receive Date: 20051007
  Receipt Date: 20050929
  Transmission Date: 20060501
  Serious: Yes (Hospitalization)
  Sender: FDA-Public Use
  Company Number: US-JNJFOC-20050901262

PATIENT
  Sex: Male
  Weight: 86.41 kg

DRUGS (5)
  1. REMICADE [Suspect]
     Indication: RHEUMATOID ARTHRITIS
     Route: 042
  2. METHOTREXATE [Concomitant]
     Indication: RHEUMATOID ARTHRITIS
  3. FOLIC ACID [Concomitant]
  4. CALCIUM GLUCONATE [Concomitant]
     Indication: OSTEOARTHRITIS
  5. CALCIUM GLUCONATE [Concomitant]
     Indication: RHEUMATOID ARTHRITIS

REACTIONS (2)
  - APPENDICEAL ABSCESS [None]
  - APPENDICITIS PERFORATED [None]
